FAERS Safety Report 6508173-1 (Version None)
Quarter: 2009Q4

REPORT INFORMATION
  Report Type: 
  Country: None (occurrence: None)
  Receive Date: 20091221
  Receipt Date: 20081204
  Transmission Date: 20100525
  Serious: No
  Sender: FDA-Public Use
  Company Number: US-ASTRAZENECA-2008UW27108

PATIENT
  Age: 68 Year
  Sex: Female

DRUGS (3)
  1. CRESTOR [Suspect]
     Route: 048
     Dates: start: 20080801
  2. ESTRACE [Concomitant]
     Dosage: DAILY
  3. PROTONIX [Concomitant]
     Dosage: AS NEEDED

REACTIONS (2)
  - MUSCULOSKELETAL PAIN [None]
  - OEDEMA PERIPHERAL [None]
